FAERS Safety Report 5067761-2 (Version None)
Quarter: 2006Q3

REPORT INFORMATION
  Report Type: 
  Country: None (occurrence: None)
  Receive Date: 20060728
  Receipt Date: 20060711
  Transmission Date: 20061208
  Serious: Yes (Other)
  Sender: FDA-Public Use
  Company Number: CA200607002459

PATIENT
  Age: 73 Year
  Sex: Female

DRUGS (2)
  1. FORTEO [Suspect]
     Indication: OSTEOPOROSIS
     Dosage: 20 UG, DAILY (1/D)
     Dates: start: 20060710, end: 20060710
  2. FORTEO [Concomitant]

REACTIONS (3)
  - ABDOMINAL PAIN UPPER [None]
  - ARRHYTHMIA [None]
  - PALPITATIONS [None]
